FAERS Safety Report 16204353 (Version 2)
Quarter: 2019Q2

REPORT INFORMATION
  Report Type: Spontaneous
  Country: CN (occurrence: CN)
  Receive Date: 20190416
  Receipt Date: 20190416
  Transmission Date: 20190711
  Serious: Yes (Other)
  Sender: FDA-Public Use
  Company Number: PHHY2019CN085871

PATIENT
  Age: 77 Year
  Sex: Male

DRUGS (3)
  1. LEVOFLOXACIN. [Concomitant]
     Active Substance: LEVOFLOXACIN
     Indication: INFECTION
     Dosage: 0.1 ML, UNK(6 TIMED)
     Route: 047
  2. BRINZOLAMIDE/TIMOLOL MALEATE [Suspect]
     Active Substance: BRINZOLAMIDE\TIMOLOL MALEATE
     Indication: PRODUCT USED FOR UNKNOWN INDICATION
     Dosage: UNK UNK, BID
     Route: 047
  3. BRIMONIDINE [Suspect]
     Active Substance: BRIMONIDINE TARTRATE
     Indication: PRODUCT USED FOR UNKNOWN INDICATION
     Dosage: UNK UNK, BID
     Route: 047

REACTIONS (7)
  - Corneal oedema [Unknown]
  - Corneal disorder [Not Recovered/Not Resolved]
  - Anterior chamber disorder [Unknown]
  - Anterior chamber inflammation [Not Recovered/Not Resolved]
  - Visual acuity reduced [Recovering/Resolving]
  - Visual impairment [Unknown]
  - Intraocular pressure increased [Recovering/Resolving]
